FAERS Safety Report 8275788-2 (Version None)
Quarter: 2012Q2

REPORT INFORMATION
  Report Type: 
  Country: None (occurrence: None)
  Receive Date: 20120410
  Receipt Date: 20120410
  Transmission Date: 20120825
  Serious: Yes (Hospitalization)
  Sender: FDA-Public Use
  Company Number: None

PATIENT
  Age: 67 Year
  Sex: Male
  Weight: 98.2 kg

DRUGS (1)
  1. KETAMINE HCL [Suspect]
     Indication: GENERAL ANAESTHESIA
     Dates: start: 20111110, end: 20111110

REACTIONS (6)
  - ANAESTHETIC COMPLICATION [None]
  - DYSKINESIA [None]
  - TREMOR [None]
  - PROCEDURAL PAIN [None]
  - PROTRUSION TONGUE [None]
  - NYSTAGMUS [None]
